FAERS Safety Report 22094455 (Version 3)
Quarter: 2024Q3

REPORT INFORMATION
  Report Type: Report from Study
  Country: US (occurrence: US)
  Receive Date: 20230314
  Receipt Date: 20240808
  Transmission Date: 20241017
  Serious: No
  Sender: NOVARTIS
  Company Number: US-002147023-NVSC2023US058278

PATIENT
  Age: 43 Year
  Sex: Female

DRUGS (1)
  1. ENTRESTO [Suspect]
     Active Substance: SACUBITRIL\VALSARTAN
     Indication: Cardiac failure congestive
     Dosage: UNK (START DATE: MAR 2023)
     Route: 065
     Dates: start: 202303

REACTIONS (6)
  - Diaphragmalgia [Unknown]
  - Abdominal distension [Unknown]
  - Abdominal discomfort [Unknown]
  - Dyspnoea [Unknown]
  - Vomiting [Unknown]
  - Anaemia [Unknown]

NARRATIVE: CASE EVENT DATE: 20230301
